FAERS Safety Report 26196937 (Version 1)
Quarter: 2025Q4

REPORT INFORMATION
  Report Type: Spontaneous
  Country: US (occurrence: US)
  Receive Date: 20251224
  Receipt Date: 20251224
  Transmission Date: 20260118
  Serious: Yes (Life-Threatening, Hospitalization, Other)
  Sender: UNICHEM
  Company Number: US-UNICHEM LABORATORIES LIMITED-UNI-2025-US-004240

PATIENT

DRUGS (1)
  1. AMITRIPTYLINE [Suspect]
     Active Substance: AMITRIPTYLINE
     Indication: Product used for unknown indication
     Dosage: UNK
     Route: 065

REACTIONS (7)
  - Intentional overdose [Unknown]
  - Electrocardiogram QRS complex prolonged [Unknown]
  - Acute respiratory distress syndrome [Recovering/Resolving]
  - Toxicity to various agents [Unknown]
  - Seizure [Unknown]
  - Agitation [Unknown]
  - Hallucination [Unknown]
